FAERS Safety Report 16251168 (Version 1)
Quarter: 2019Q2

REPORT INFORMATION
  Report Type: Spontaneous
  Country: US (occurrence: US)
  Receive Date: 20190426
  Receipt Date: 20190426
  Transmission Date: 20190711
  Serious: Yes (Disabling)
  Sender: FDA-Public Use
  Company Number: None

PATIENT
  Sex: Male
  Weight: 117 kg

DRUGS (2)
  1. TESTOSTERONE CYPIONATE 2000 MG/10 ML [Suspect]
     Active Substance: TESTOSTERONE CYPIONATE
     Indication: BLOOD TESTOSTERONE DECREASED
     Dosage: ?          QUANTITY:1 INJECTION(S);OTHER FREQUENCY:WEEKLY;?
     Route: 030
     Dates: start: 20181018, end: 20190412
  2. MOTRIN [Concomitant]
     Active Substance: IBUPROFEN

REACTIONS (10)
  - Product contamination [None]
  - Product contamination physical [None]
  - Arthralgia [None]
  - Influenza [None]
  - Chest pain [None]
  - Injection site pain [None]
  - Syringe issue [None]
  - Feeling abnormal [None]
  - Peripheral swelling [None]
  - Nasopharyngitis [None]
